FAERS Safety Report 18557182 (Version 2)
Quarter: 2020Q4

REPORT INFORMATION
  Report Type: Report from Study
  Country: US (occurrence: US)
  Receive Date: 20201129
  Receipt Date: 20201219
  Transmission Date: 20210114
  Serious: Yes (Other)
  Sender: FDA-Public Use
  Company Number: NVSC2020US317235

PATIENT
  Age: 56 Year
  Sex: Male

DRUGS (1)
  1. ENTRESTO [Suspect]
     Active Substance: SACUBITRIL\VALSARTAN
     Indication: PRODUCT USED FOR UNKNOWN INDICATION
     Dosage: UNK UNK, BID
     Route: 048

REACTIONS (6)
  - Cardiac failure congestive [Unknown]
  - Cough [Unknown]
  - Fluid retention [Unknown]
  - Dyspnoea exertional [Unknown]
  - Memory impairment [Unknown]
  - Diabetes mellitus [Unknown]
